FAERS Safety Report 19856145 (Version 1)
Quarter: 2021Q3

REPORT INFORMATION
  Report Type: Spontaneous
  Country: US (occurrence: US)
  Receive Date: 20210920
  Receipt Date: 20210920
  Transmission Date: 20211014
  Serious: No
  Sender: FDA-Public Use
  Company Number: US-TEVA-2021-US-1955992

PATIENT
  Age: 17 Year
  Sex: Male

DRUGS (1)
  1. CLARAVIS [Suspect]
     Active Substance: ISOTRETINOIN
     Route: 065

REACTIONS (2)
  - Vision blurred [Unknown]
  - Night blindness [Unknown]
